FAERS Safety Report 21437177 (Version 1)
Quarter: 2022Q4

REPORT INFORMATION
  Report Type: Spontaneous
  Country: US (occurrence: None)
  Receive Date: 20221007
  Receipt Date: 20221007
  Transmission Date: 20230113
  Serious: No
  Sender: FDA-Public Use
  Company Number: None

PATIENT
  Age: 75 Year
  Sex: Male
  Weight: 90.72 kg

DRUGS (12)
  1. ERLEADA [Suspect]
     Active Substance: APALUTAMIDE
     Dosage: FREQUENCY : DAILY;?
     Route: 048
  2. ASPIRIN [Concomitant]
     Active Substance: ASPIRIN
  3. ATORVASTATIN [Concomitant]
     Active Substance: ATORVASTATIN
  4. BICALUTAMIDE [Concomitant]
     Active Substance: BICALUTAMIDE
  5. BISOPROLOL [Concomitant]
     Active Substance: BISOPROLOL
  6. CARDURA [Concomitant]
     Active Substance: DOXAZOSIN MESYLATE
  7. VITAMINS [Concomitant]
     Active Substance: VITAMINS
  8. FIRMAGON [Concomitant]
     Active Substance: DEGARELIX ACETATE
  9. JARDIANCE [Concomitant]
     Active Substance: EMPAGLIFLOZIN
  10. METFORMIN [Concomitant]
     Active Substance: METFORMIN HYDROCHLORIDE
  11. RAMIPRIL [Concomitant]
     Active Substance: RAMIPRIL
  12. VITAMIN D3 [Concomitant]
     Active Substance: CHOLECALCIFEROL

REACTIONS (1)
  - Disease progression [None]
